FAERS Safety Report 20961028 (Version 2)
Quarter: 2022Q2

REPORT INFORMATION
  Report Type: Spontaneous
  Country: US (occurrence: US)
  Receive Date: 20220615
  Receipt Date: 20220624
  Transmission Date: 20220721
  Serious: Yes (Other)
  Sender: FDA-Public Use
  Company Number: US-AMGEN-USASP2022101840

PATIENT
  Sex: Female

DRUGS (4)
  1. AIMOVIG [Suspect]
     Active Substance: ERENUMAB-AOOE
     Indication: Product used for unknown indication
     Dosage: 70 MILLIGRAM
     Route: 065
  2. FIORICET [Concomitant]
     Active Substance: ACETAMINOPHEN\BUTALBITAL\CAFFEINE
     Indication: Product used for unknown indication
     Route: 065
  3. BOTOX [Concomitant]
     Active Substance: ONABOTULINUMTOXINA
  4. LYRICA [Concomitant]
     Active Substance: PREGABALIN

REACTIONS (6)
  - Neuropathy peripheral [Unknown]
  - Product storage error [Unknown]
  - Intentional product misuse [Unknown]
  - Adverse event [Unknown]
  - Migraine [Not Recovered/Not Resolved]
  - Illness [Unknown]
